FAERS Safety Report 15956165 (Version 3)
Quarter: 2019Q2

REPORT INFORMATION
  Report Type: Spontaneous
  Country: US (occurrence: US)
  Receive Date: 20190213
  Receipt Date: 20190404
  Transmission Date: 20190711
  Serious: No
  Sender: FDA-Public Use
  Company Number: US-AMGEN-USASP2019018624

PATIENT
  Age: 59 Year
  Sex: Female
  Weight: 111 kg

DRUGS (1)
  1. PROLIA [Suspect]
     Active Substance: DENOSUMAB
     Indication: OSTEOPOROSIS POSTMENOPAUSAL
     Dosage: UNK
     Route: 065
     Dates: start: 201808

REACTIONS (3)
  - Gingival pain [Recovered/Resolved]
  - Loose tooth [Unknown]
  - Gingival swelling [Recovered/Resolved]

NARRATIVE: CASE EVENT DATE: 2018
